FAERS Safety Report 10071380 (Version 2)
Quarter: 2014Q2

REPORT INFORMATION
  Report Type: Spontaneous
  Country: GB (occurrence: GB)
  Receive Date: 20140410
  Receipt Date: 20140508
  Transmission Date: 20141212
  Serious: Yes (Death, Other)
  Sender: FDA-Public Use
  Company Number: PHHY2014GB039947

PATIENT
  Sex: Female

DRUGS (5)
  1. METFORMIN [Suspect]
     Indication: TYPE 2 DIABETES MELLITUS
  2. IBUPROFEN [Suspect]
  3. ELIQUIS [Suspect]
  4. NAPROXEN [Concomitant]
  5. RAMIPRIL [Concomitant]

REACTIONS (4)
  - Death [Fatal]
  - Creatinine renal clearance abnormal [Unknown]
  - Infection [Unknown]
  - Drug interaction [Unknown]
